FAERS Safety Report 4659324-5 (Version None)
Quarter: 2005Q2

REPORT INFORMATION
  Report Type: 
  Country: None (occurrence: None)
  Receive Date: 20050502
  Receipt Date: 20050321
  Transmission Date: 20051028
  Serious: Yes (Other)
  Sender: FDA-Public Use
  Company Number: 200511948US

PATIENT
  Age: 51 Year
  Sex: Female
  Weight: 60 kg

DRUGS (1)
  1. KETEK [Suspect]
     Dosage: 800 MG QD PO
     Route: 048
     Dates: start: 20050127, end: 20050129

REACTIONS (2)
  - DIZZINESS [None]
  - VISION BLURRED [None]
